FAERS Safety Report 8886017 (Version 1)
Quarter: 2012Q4

REPORT INFORMATION
  Report Type: 
  Country: US (occurrence: US)
  Receive Date: 20121105
  Receipt Date: 20121105
  Transmission Date: 20130627
  Serious: Yes (Other)
  Sender: FDA-Public Use
  Company Number: US-PFIZER INC-2012273027

PATIENT
  Age: 59 Year
  Sex: Female
  Weight: 68.93 kg

DRUGS (5)
  1. LYRICA [Suspect]
     Indication: DIABETIC NEUROPATHY
     Dosage: 50 mg, 2x/day
     Route: 048
     Dates: start: 2011
  2. GLUMETZA [Concomitant]
     Dosage: UNK
  3. GLYBURIDE [Concomitant]
     Dosage: UNK
  4. CALCIUM [Concomitant]
     Dosage: 1200 mg, 2x/day
  5. LIPITOR [Concomitant]
     Dosage: UNK

REACTIONS (7)
  - Gallbladder disorder [Unknown]
  - Medication residue [Unknown]
  - Pruritus [Unknown]
  - Fatigue [Unknown]
  - Product solubility abnormal [Unknown]
  - Diarrhoea [Unknown]
  - Hepatic enzyme abnormal [Unknown]
